FAERS Safety Report 11852164 (Version 1)
Quarter: 2015Q4

REPORT INFORMATION
  Report Type: Spontaneous
  Country: JP (occurrence: JP)
  Receive Date: 20151218
  Receipt Date: 20151218
  Transmission Date: 20160305
  Serious: Yes (Hospitalization)
  Sender: FDA-Public Use
  Company Number: PHHY2015JP160888

PATIENT
  Age: 75 Year
  Sex: Male

DRUGS (2)
  1. RIVASTACH [Suspect]
     Active Substance: RIVASTIGMINE
     Indication: DEMENTIA ALZHEIMER^S TYPE
     Dosage: 4.6 MG/24 HOURS, 9 MG RIVASTIGMINE BASE (PATCH 5 (CM2))
     Route: 062
  2. RIVASTACH [Suspect]
     Active Substance: RIVASTIGMINE
     Dosage: 9 MG, UNK (CUT INTO HALVES FOR 4.5 MG THERAPY)
     Route: 062

REACTIONS (4)
  - Treatment noncompliance [Unknown]
  - Wrong technique in product usage process [Unknown]
  - Infection [Unknown]
  - Dermatitis [Unknown]
